FAERS Safety Report 9349766 (Version 2)
Quarter: 2013Q2

REPORT INFORMATION
  Report Type: Spontaneous
  Country: JP (occurrence: JP)
  Receive Date: 20130614
  Receipt Date: 20130614
  Transmission Date: 20140414
  Serious: Yes (Life-Threatening, Hospitalization)
  Sender: FDA-Public Use
  Company Number: JP-BAXTER-2013BAX015949

PATIENT
  Age: 52 Year
  Sex: Male

DRUGS (6)
  1. HOLOXAN_IFOSFAMIDE 1.00 G_POWDER FOR SOLUTION FOR INFUSION_VIAL, SINGL [Suspect]
     Indication: OSTEOSARCOMA
     Route: 041
     Dates: start: 20130415, end: 20130417
  2. HOLOXAN_IFOSFAMIDE 1.00 G_POWDER FOR SOLUTION FOR INFUSION_VIAL, SINGL [Suspect]
     Indication: METASTASES TO LUNG
  3. CELLTOP_ETOPOSIDE 20.00 MG/ML_SOLUTION FOR INJECTION_VIAL, GLASS [Suspect]
     Indication: OSTEOSARCOMA
     Route: 042
     Dates: start: 20130415
  4. CELLTOP_ETOPOSIDE 20.00 MG/ML_SOLUTION FOR INJECTION_VIAL, GLASS [Suspect]
     Indication: METASTASES TO LUNG
  5. CAFFEINE [Concomitant]
     Indication: OSTEOSARCOMA
     Dosage: 4.8 G/DAY
     Route: 042
     Dates: start: 20130415, end: 20130417
  6. CAFFEINE [Concomitant]
     Indication: METASTASES TO LUNG

REACTIONS (2)
  - Toxic encephalopathy [Recovered/Resolved]
  - Renal failure acute [Recovered/Resolved]
